FAERS Safety Report 18254714 (Version 1)
Quarter: 2020Q3

REPORT INFORMATION
  Report Type: Spontaneous
  Country: US (occurrence: US)
  Receive Date: 20200910
  Receipt Date: 20200910
  Transmission Date: 20201103
  Serious: Yes (Hospitalization, Disabling, Other)
  Sender: FDA-Public Use
  Company Number: US-PURDUE-USA-2003-0009613

PATIENT
  Sex: Male
  Weight: 80.73 kg

DRUGS (13)
  1. CODEINE W/PARACETAMOL [Suspect]
     Active Substance: ACETAMINOPHEN\CODEINE PHOSPHATE
     Indication: PRODUCT USED FOR UNKNOWN INDICATION
     Dosage: 30 MG, UNK
     Route: 065
  2. LORAZEPAM. [Concomitant]
     Active Substance: LORAZEPAM
     Indication: SLEEP DISORDER
     Dosage: UNK UNK, PM
  3. WELLBUTRIN [Concomitant]
     Active Substance: BUPROPION HYDROCHLORIDE
     Indication: PRODUCT USED FOR UNKNOWN INDICATION
     Dosage: 150 MG, UNK
     Route: 065
  4. OXYCONTIN [Suspect]
     Active Substance: OXYCODONE HYDROCHLORIDE
     Dosage: 20 MG, UNK
     Route: 048
  5. NEURONTIN [Concomitant]
     Active Substance: GABAPENTIN
     Indication: PRODUCT USED FOR UNKNOWN INDICATION
     Dosage: UNK UNK, TID
     Route: 048
  6. OXYCODONE HCL CR TABLETS (SIMILAR TO NDA 22?272) [Suspect]
     Active Substance: OXYCODONE HYDROCHLORIDE
     Indication: PRODUCT USED FOR UNKNOWN INDICATION
     Dosage: UNK
     Route: 048
  7. CLONAZEPAM. [Concomitant]
     Active Substance: CLONAZEPAM
     Indication: PRODUCT USED FOR UNKNOWN INDICATION
     Route: 048
  8. DURAGESIC [Concomitant]
     Active Substance: FENTANYL
     Indication: PRODUCT USED FOR UNKNOWN INDICATION
     Dosage: 75 MCG/HR, UNK
     Route: 065
  9. DUROGESIC [Concomitant]
     Active Substance: FENTANYL
     Indication: PRODUCT USED FOR UNKNOWN INDICATION
     Route: 062
  10. NORCO [Suspect]
     Active Substance: ACETAMINOPHEN\HYDROCODONE BITARTRATE
     Indication: PRODUCT USED FOR UNKNOWN INDICATION
     Dosage: 10 MG, UNK
     Route: 065
  11. OXYCONTIN [Suspect]
     Active Substance: OXYCODONE HYDROCHLORIDE
     Indication: RESTLESS LEGS SYNDROME
     Dosage: 80 MG, TID
     Route: 048
     Dates: start: 200001
  12. PROVERA [Concomitant]
     Active Substance: MEDROXYPROGESTERONE ACETATE
     Indication: PRODUCT USED FOR UNKNOWN INDICATION
     Route: 048
  13. CELEXA [Concomitant]
     Active Substance: CITALOPRAM HYDROBROMIDE
     Indication: PRODUCT USED FOR UNKNOWN INDICATION
     Route: 048

REACTIONS (47)
  - Loss of consciousness [Unknown]
  - Anxiety [Unknown]
  - Fatigue [Unknown]
  - Increased appetite [Unknown]
  - Abdominal pain [Unknown]
  - Feeling abnormal [Unknown]
  - Musculoskeletal stiffness [Unknown]
  - Cognitive disorder [Unknown]
  - Pain [Unknown]
  - Anger [Unknown]
  - Dyskinesia [Unknown]
  - Nervousness [Unknown]
  - Dysphagia [Unknown]
  - Dyspepsia [Unknown]
  - Sleep apnoea syndrome [Unknown]
  - Disturbance in attention [Unknown]
  - Drug dependence [Unknown]
  - Formication [Unknown]
  - Myalgia [Unknown]
  - Dizziness [Unknown]
  - Pain in extremity [Unknown]
  - Nausea [Unknown]
  - Rhinorrhoea [Unknown]
  - Hypotonia [None]
  - Unevaluable event [Unknown]
  - Gastric disorder [Unknown]
  - Snoring [Unknown]
  - Dyspnoea [Unknown]
  - Neck pain [Unknown]
  - Arthralgia [Unknown]
  - Overdose [Unknown]
  - Depression [Unknown]
  - Lacrimation increased [Unknown]
  - Constipation [Unknown]
  - Spinal pain [Unknown]
  - Somnolence [Unknown]
  - Nightmare [Unknown]
  - Sexual dysfunction [Unknown]
  - Irritability [Unknown]
  - Sleep paralysis [Unknown]
  - Memory impairment [Unknown]
  - Erectile dysfunction [Unknown]
  - Disability [Unknown]
  - Drug withdrawal syndrome [Unknown]
  - Vomiting [Unknown]
  - Weight increased [Unknown]
  - Hyperhidrosis [Unknown]
